FAERS Safety Report 5015876-7 (Version None)
Quarter: 2006Q2

REPORT INFORMATION
  Report Type: 
  Country: None (occurrence: None)
  Receive Date: 20060425
  Receipt Date: 20060306
  Transmission Date: 20061013
  Serious: No
  Sender: FDA-Public Use
  Company Number: 218615

PATIENT
  Age: 36 Year
  Sex: Female

DRUGS (4)
  1. XOLAIR [Suspect]
     Indication: ASTHMA
     Dosage: 375 MG, Q2W, SUBCUTANEOUS
     Route: 058
     Dates: start: 20050916, end: 20050930
  2. SINGULAIR [Concomitant]
  3. ADVAIR (FLUTICASONE, SALMETEROL XINAFOATE) [Concomitant]
  4. ATROVENT [Concomitant]

REACTIONS (5)
  - ANGIONEUROTIC OEDEMA [None]
  - DERMATITIS ATOPIC [None]
  - HYPERSENSITIVITY [None]
  - NAUSEA [None]
  - URTICARIA [None]
